FAERS Safety Report 6053156-1 (Version None)
Quarter: 2009Q1

REPORT INFORMATION
  Report Type: 
  Country: None (occurrence: None)
  Receive Date: 20090123
  Receipt Date: 20090113
  Transmission Date: 20090719
  Serious: Yes (Hospitalization)
  Sender: FDA-Public Use
  Company Number: 2009SP001307

PATIENT
  Age: 59 Year
  Sex: Male

DRUGS (6)
  1. INTRON A [Suspect]
     Indication: RENAL CELL CARCINOMA
     Dosage: 9 MIU;TIW
  2. BEVACIZUMAB [Concomitant]
  3. ENALAPRIL MALEATE [Concomitant]
  4. HYDROCHLOROTHIAZIDE [Concomitant]
  5. DOXAZOSIN MESYLATE [Concomitant]
  6. ALLOPURINOL [Concomitant]

REACTIONS (4)
  - BLOOD PRESSURE SYSTOLIC INCREASED [None]
  - GENERAL PHYSICAL HEALTH DETERIORATION [None]
  - HYPERGLYCAEMIC HYPEROSMOLAR NONKETOTIC SYNDROME [None]
  - TYPE 2 DIABETES MELLITUS [None]
